FAERS Safety Report 7032380-5 (Version None)
Quarter: 2010Q4

REPORT INFORMATION
  Report Type: 
  Country: None (occurrence: None)
  Receive Date: 20101007
  Receipt Date: 20100818
  Transmission Date: 20110411
  Serious: Yes (Life-Threatening, Hospitalization)
  Sender: FDA-Public Use
  Company Number: DE-BRISTOL-MYERS SQUIBB COMPANY-15244619

PATIENT
  Age: 58 Year
  Sex: Female
  Weight: 53 kg

DRUGS (4)
  1. CETUXIMAB [Suspect]
     Indication: COLORECTAL CANCER METASTATIC
     Dosage: REC INF ON 09DEC09.
     Route: 042
     Dates: start: 20091021, end: 20091209
  2. IRINOTECAN HCL [Suspect]
     Indication: COLORECTAL CANCER METASTATIC
     Dosage: REC INF ON 02DEC09.
     Route: 042
     Dates: start: 20091021, end: 20091202
  3. FLUOROURACIL [Suspect]
     Indication: COLORECTAL CANCER METASTATIC
     Dosage: REC INF ON 02DEC09
     Route: 042
     Dates: start: 20091021, end: 20091202
  4. FOLINIC ACID [Suspect]
     Indication: COLORECTAL CANCER METASTATIC
     Dosage: REC INF ON 02DEC09
     Route: 042
     Dates: start: 20091021, end: 20091202

REACTIONS (2)
  - DYSPNOEA [None]
  - VENA CAVA THROMBOSIS [None]
